FAERS Safety Report 6064807-X (Version None)
Quarter: 2009Q1

REPORT INFORMATION
  Report Type: 
  Country: None (occurrence: None)
  Receive Date: 20090204
  Receipt Date: 20090123
  Transmission Date: 20090719
  Serious: Yes (Other)
  Sender: FDA-Public Use
  Company Number: US-ROCHE-610202

PATIENT
  Sex: Female

DRUGS (1)
  1. PEG-INTERFERON A-2A (RO 25-8310) [Suspect]
     Indication: HEPATITIS C
     Route: 065

REACTIONS (3)
  - HAEMOGLOBIN DECREASED [None]
  - HEPATITIS C [None]
  - LIVER TRANSPLANT [None]
